FAERS Safety Report 8589983-6 (Version None)
Quarter: 2012Q3

REPORT INFORMATION
  Report Type: 
  Country: None (occurrence: None)
  Receive Date: 20120813
  Receipt Date: 20120802
  Transmission Date: 20120928
  Serious: Yes (Hospitalization)
  Sender: FDA-Public Use
  Company Number: US-ELI_LILLY_AND_COMPANY-US201208001282

PATIENT
  Sex: Female

DRUGS (2)
  1. HUMALOG [Suspect]
     Indication: DIABETES MELLITUS
     Dosage: UNK, PRN
  2. LANTUS [Concomitant]

REACTIONS (7)
  - HOSPITALISATION [None]
  - CONTUSION [None]
  - FALL [None]
  - CONCUSSION [None]
  - LACERATION [None]
  - DIZZINESS [None]
  - MEDICATION ERROR [None]
